FAERS Safety Report 22088899 (Version 2)
Quarter: 2023Q2

REPORT INFORMATION
  Report Type: Spontaneous
  Country: GB (occurrence: GB)
  Receive Date: 20230313
  Receipt Date: 20230602
  Transmission Date: 20230721
  Serious: Yes (Hospitalization, Disabling, Other)
  Sender: FDA-Public Use
  Company Number: None

PATIENT
  Sex: Female

DRUGS (2)
  1. ARIPIPRAZOLE [Suspect]
     Active Substance: ARIPIPRAZOLE
     Indication: Bipolar disorder
     Dosage: 10 MG
     Route: 048
     Dates: start: 20171120, end: 20171207
  2. ARIPIPRAZOLE [Suspect]
     Active Substance: ARIPIPRAZOLE
     Indication: Product used for unknown indication
     Dosage: UNKNOWN
     Route: 065

REACTIONS (20)
  - Drug ineffective [Unknown]
  - Agitation [Unknown]
  - Confusional state [Unknown]
  - Paranoia [Unknown]
  - Delusion [Unknown]
  - Gait disturbance [Unknown]
  - Insomnia [Unknown]
  - Urinary incontinence [Unknown]
  - Blood pressure increased [Unknown]
  - Pyrexia [Unknown]
  - Blood creatine phosphokinase increased [Unknown]
  - Blood prolactin increased [Unknown]
  - Photophobia [Unknown]
  - Sexually inappropriate behaviour [Unknown]
  - Illusion [Unknown]
  - Impaired work ability [Unknown]
  - Social avoidant behaviour [Unknown]
  - Living alone [Unknown]
  - Soliloquy [Unknown]
  - Anal incontinence [Unknown]

NARRATIVE: CASE EVENT DATE: 20171205
